FAERS Safety Report 8915812 (Version 3)
Quarter: 2012Q4

REPORT INFORMATION
  Report Type: Report from Study
  Country: BE (occurrence: BE)
  Receive Date: 20121119
  Receipt Date: 20121206
  Transmission Date: 20130627
  Serious: Yes (Other)
  Sender: FDA-Public Use
  Company Number: BE-PFIZER INC-2012287981

PATIENT
  Sex: Female

DRUGS (13)
  1. CISPLATIN [Suspect]
     Indication: GESTATIONAL TROPHOBLASTIC TUMOUR
     Dosage: 75 mg/m2, cyclic, day 1 every 14 days
     Route: 042
  2. ETOPOSIDE [Concomitant]
     Indication: GESTATIONAL TROPHOBLASTIC TUMOUR
     Dosage: 100 mg/m2, cyclic, day 1 and day 2 every week
  3. ETOPOSIDE [Concomitant]
     Dosage: 150 mg/m2, cyclic, day 1 every 14 days
  4. METHOTREXATE [Concomitant]
     Indication: GESTATIONAL TROPHOBLASTIC TUMOUR
     Dosage: 1000 mg/m2, cyclic, day 1 every week
  5. METHOTREXATE [Concomitant]
     Dosage: 300 mg/m2, cyclic, day 8 every 14 days
  6. DACTINOMYCIN [Concomitant]
     Indication: GESTATIONAL TROPHOBLASTIC TUMOUR
     Dosage: 300 mg/m2, cyclic, day 8 evry 14 days
     Route: 042
  7. SODIUM CHLORIDE [Concomitant]
     Indication: PROPHYLAXIS
     Dosage: 1L of 0.9% over 2 hours on day 1
     Route: 042
  8. SODIUM BICARBONATE [Concomitant]
     Indication: PROPHYLAXIS
     Dosage: 500 mL of 1.4% over 30 min on day 1
  9. APREPITANT [Concomitant]
     Indication: ANTIEMETIC SUPPORTIVE CARE
     Dosage: UNK
  10. ONDANSETRON [Concomitant]
     Indication: ANTIEMETIC SUPPORTIVE CARE
     Dosage: UNK
  11. SOLUMEDROL [Concomitant]
     Indication: PROPHYLAXIS
     Dosage: UNK
  12. FOLINIC ACID [Concomitant]
     Indication: DRUG TOXICITY PROPHYLAXIS
     Dosage: 7.5 mg, 1 in 6 hr
  13. ALLOPURINOL [Concomitant]
     Indication: URIC ACID NEPHROPATHY ACUTE
     Dosage: 100 mg, 3x/day, for 4 days

REACTIONS (1)
  - Ototoxicity [Unknown]
